FAERS Safety Report 24245030 (Version 1)
Quarter: 2024Q3

REPORT INFORMATION
  Report Type: Spontaneous
  Country: CA (occurrence: CA)
  Receive Date: 20240823
  Receipt Date: 20240823
  Transmission Date: 20241016
  Serious: Yes (Other)
  Sender: NOVARTIS
  Company Number: CA-002147023-NVSC2024CA168843

PATIENT
  Age: 9 Year
  Sex: Male

DRUGS (17)
  1. RYDAPT [Suspect]
     Active Substance: MIDOSTAURIN
     Indication: Acute myeloid leukaemia
     Dosage: 15 MG/M2, BID (1 EVERY 12 HOURS)
     Route: 048
  2. RYDAPT [Suspect]
     Active Substance: MIDOSTAURIN
     Dosage: 30 MG/M2, QD
     Route: 048
  3. RYDAPT [Suspect]
     Active Substance: MIDOSTAURIN
     Dosage: 15 MG
     Route: 048
  4. CYCLOPHOSPHAMIDE [Suspect]
     Active Substance: CYCLOPHOSPHAMIDE
     Indication: Acute myeloid leukaemia
     Dosage: 2000 MG
     Route: 042
  5. CYTARABINE [Suspect]
     Active Substance: CYTARABINE
     Indication: Acute myeloid leukaemia
     Dosage: 1000 MG/M2
     Route: 037
  6. CYTARABINE [Suspect]
     Active Substance: CYTARABINE
     Dosage: 100 MG/M2
     Route: 037
  7. CYTARABINE [Suspect]
     Active Substance: CYTARABINE
     Dosage: 100 MG/M2
     Route: 037
  8. CYTARABINE [Suspect]
     Active Substance: CYTARABINE
     Indication: Acute myeloid leukaemia
     Dosage: 2000 MG/M2, QD
     Route: 037
  9. ETOPOSIDE [Suspect]
     Active Substance: ETOPOSIDE
     Indication: Acute myeloid leukaemia
     Dosage: 100 MG/M2
     Route: 065
  10. ETOPOSIDE [Suspect]
     Active Substance: ETOPOSIDE
     Indication: Acute myeloid leukaemia
     Dosage: 100 MG/M2
     Route: 065
  11. FILGRASTIM [Suspect]
     Active Substance: FILGRASTIM
     Indication: Acute myeloid leukaemia
     Dosage: UNK
     Route: 065
  12. FLUDARABINE PHOSPHATE [Suspect]
     Active Substance: FLUDARABINE PHOSPHATE
     Indication: Acute myeloid leukaemia
     Dosage: UNK
     Route: 065
  13. SORAFENIB [Suspect]
     Active Substance: SORAFENIB
     Indication: Product used for unknown indication
     Dosage: 200 MG/M2, QD
     Route: 065
  14. NEXAVAR [Suspect]
     Active Substance: SORAFENIB
     Indication: Acute myeloid leukaemia
     Dosage: 200 MG/M2, QD
     Route: 065
  15. BUSULFEX [Suspect]
     Active Substance: BUSULFAN
     Indication: Acute myeloid leukaemia
     Dosage: UNK
     Route: 042
  16. THYMOGLOBULIN [Suspect]
     Active Substance: LAPINE T-LYMPHOCYTE IMMUNE GLOBULIN
     Indication: Acute myeloid leukaemia
     Dosage: UNK
     Route: 042
  17. DAUNORUBICIN HYDROCHLORIDE [Suspect]
     Active Substance: DAUNORUBICIN HYDROCHLORIDE
     Indication: Acute myeloid leukaemia
     Dosage: 50 MG/M2
     Route: 042

REACTIONS (8)
  - Lymphadenopathy [Recovered/Resolved with Sequelae]
  - Acute myeloid leukaemia recurrent [Recovered/Resolved with Sequelae]
  - Bone marrow failure [Recovered/Resolved with Sequelae]
  - Drug intolerance [Recovered/Resolved with Sequelae]
  - Malignant neoplasm progression [Recovered/Resolved with Sequelae]
  - Myelosuppression [Recovered/Resolved with Sequelae]
  - Pancytopenia [Recovered/Resolved with Sequelae]
  - Skin toxicity [Recovered/Resolved with Sequelae]
